FAERS Safety Report 15966512 (Version 4)
Quarter: 2019Q1

REPORT INFORMATION
  Report Type: Report from Study
  Country: JP (occurrence: JP)
  Receive Date: 20190215
  Receipt Date: 20190313
  Transmission Date: 20190418
  Serious: Yes (Hospitalization)
  Sender: FDA-Public Use
  Company Number: JP-BAYER-2019-026152

PATIENT
  Age: 56 Year
  Sex: Female
  Weight: 60.7 kg

DRUGS (22)
  1. COPANLISIB. [Suspect]
     Active Substance: COPANLISIB
     Indication: B-CELL LYMPHOMA RECURRENT
     Dosage: DAILY DOSE 60 MG (3WEEKS ON, 1WEEK OFF)
     Route: 042
     Dates: start: 20190123, end: 20190123
  2. RITUXIMAB. [Suspect]
     Active Substance: RITUXIMAB
     Indication: B-CELL LYMPHOMA RECURRENT
     Dosage: DAILY DOSE 623 MG (EVERY 4 WEEKS FOR 6 CYCLES)
     Route: 042
     Dates: start: 20190123, end: 20190123
  3. LOXONIN [Concomitant]
     Active Substance: LOXOPROFEN SODIUM
     Indication: BACK PAIN
     Dosage: 100 MG, PRN
     Route: 061
     Dates: start: 20190207
  4. BUSCOPAN [Concomitant]
     Active Substance: BUTYLSCOPOLAMINE BROMIDE
     Indication: ENTEROCOLITIS
     Dosage: 20 MG, ONCE
     Route: 042
     Dates: start: 20190211, end: 20190211
  5. BENDAMUSTINE [Suspect]
     Active Substance: BENDAMUSTINE
     Indication: B-CELL LYMPHOMA RECURRENT
     Dosage: DAILY DOSE 150 MG (EVERY 4 WEEKS FOR 6 CYCLES)
     Route: 042
     Dates: start: 20190123, end: 20190123
  6. CALONAL [Concomitant]
     Active Substance: ACETAMINOPHEN
     Indication: PROPHYLAXIS
     Dosage: 400 MG, Q4WK
     Route: 048
     Dates: start: 20190123
  7. GRANISETRON [Concomitant]
     Active Substance: GRANISETRON
     Indication: PROPHYLAXIS
     Dosage: 3 MG/DAY 1, 2/Q4W
     Route: 041
     Dates: start: 20190123
  8. TAKECAB [Concomitant]
     Active Substance: VONOPRAZAN FUMURATE
     Indication: PROPHYLAXIS AGAINST GASTROINTESTINAL ULCER
     Dosage: 10 MG, QD
     Route: 048
     Dates: start: 20190123, end: 20190203
  9. DEBERZA [Concomitant]
     Active Substance: TOFOGLIFLOZIN
     Indication: HYPERGLYCAEMIA
     Dosage: 20 MG, QD
     Route: 048
     Dates: start: 20190125, end: 20190203
  10. SOLU-CORTEF [Concomitant]
     Active Substance: HYDROCORTISONE SODIUM SUCCINATE
     Indication: PROPHYLAXIS
     Dosage: 200 MG, Q4WK
     Route: 048
     Dates: start: 20190123
  11. BENDAMUSTINE [Suspect]
     Active Substance: BENDAMUSTINE
     Indication: B-CELL LYMPHOMA RECURRENT
     Dosage: DAILY DOSE 150 MG (EVERY 4 WEEKS FOR 6 CYCLES)
     Route: 042
     Dates: start: 20190124, end: 20190124
  12. POLARAMINE [Concomitant]
     Active Substance: DEXCHLORPHENIRAMINE MALEATE
     Indication: PROPHYLAXIS
     Dosage: 2 MG, Q4WK
     Route: 048
     Dates: start: 20190123
  13. ACICLOVIR [Concomitant]
     Active Substance: ACYCLOVIR
     Indication: INFECTION PROPHYLAXIS
     Dosage: 200 MG, QD
     Route: 048
     Dates: start: 20190123, end: 20190203
  14. ENTECAVIR. [Concomitant]
     Active Substance: ENTECAVIR
     Indication: ANTIVIRAL PROPHYLAXIS
     Dosage: 0.5 MG, QD
     Route: 048
     Dates: start: 20190113, end: 20190203
  15. DAIPHEN [Concomitant]
     Active Substance: SULFAMETHOXAZOLE\TRIMETHOPRIM
     Indication: INFECTION PROPHYLAXIS
     Dosage: 1 DF, QD
     Route: 048
     Dates: start: 20190123, end: 20190203
  16. TENOZET [Concomitant]
     Active Substance: TENOFOVIR DISOPROXIL FUMARATE
     Indication: ANTIVIRAL PROPHYLAXIS
     Dosage: 300 MG, QOD
     Route: 048
     Dates: start: 20190204
  17. SLOW-K [Concomitant]
     Active Substance: POTASSIUM CHLORIDE
     Indication: ENTEROCOLITIS
     Dosage: 600 MG, BID
     Route: 048
     Dates: start: 20190213
  18. COPANLISIB. [Suspect]
     Active Substance: COPANLISIB
     Indication: B-CELL LYMPHOMA RECURRENT
     Dosage: DAILY DOSE 60 MG (3WEEKS ON, 1WEEK OFF)
     Route: 042
     Dates: start: 20190129, end: 20190129
  19. HUMALOG [Concomitant]
     Active Substance: INSULIN LISPRO
     Indication: HYPERGLYCAEMIA
     Dosage: 2 U, ONCE
     Route: 058
     Dates: start: 20190207
  20. DEXART [Concomitant]
     Active Substance: DEXAMETHASONE SODIUM PHOSPHATE
     Indication: PROPHYLAXIS
     Dosage: 5.5 MG, QD
     Route: 041
     Dates: start: 20190123, end: 20190123
  21. TAMIFLU [Concomitant]
     Active Substance: OSELTAMIVIR PHOSPHATE
     Indication: ANTIVIRAL PROPHYLAXIS
     Dosage: 75 MG, QD
     Route: 048
     Dates: start: 20190115, end: 20190121
  22. CEFEPIME HYDROCHLORIDE. [Concomitant]
     Active Substance: CEFEPIME HYDROCHLORIDE
     Indication: FEBRILE NEUTROPENIA
     Dosage: 1 G, QD
     Route: 041
     Dates: start: 20190211, end: 20190211

REACTIONS (2)
  - Erythema multiforme [Recovered/Resolved]
  - Sepsis [Recovered/Resolved]

NARRATIVE: CASE EVENT DATE: 20190203
